FAERS Safety Report 5512418-4 (Version None)
Quarter: 2007Q4

REPORT INFORMATION
  Report Type: 
  Country: None (occurrence: None)
  Receive Date: 20071112
  Receipt Date: 20061220
  Transmission Date: 20080405
  Serious: Yes (Disabling, Other)
  Sender: FDA-Public Use
  Company Number: A0596809A

PATIENT
  Age: 70 Year
  Sex: Female
  Weight: 109.1 kg

DRUGS (9)
  1. AVANDAMET [Suspect]
     Route: 048
     Dates: start: 20050113, end: 20051220
  2. PLAVIX [Concomitant]
     Dosage: 75MG PER DAY
     Route: 048
  3. LISINOPRIL [Concomitant]
     Dosage: 20MG TWICE PER DAY
     Route: 048
  4. HYDROCHLOROTHIAZIDE [Concomitant]
     Dosage: 25MG PER DAY
     Route: 048
  5. IBUPROFEN [Concomitant]
  6. MULTI-VITAMIN [Concomitant]
  7. CALCIUM [Concomitant]
  8. OMEGA-3 [Concomitant]
  9. CRESTOR [Concomitant]
     Dosage: 10MG PER DAY

REACTIONS (1)
  - MACULAR OEDEMA [None]
